FAERS Safety Report 6868649-4 (Version None)
Quarter: 2010Q3

REPORT INFORMATION
  Report Type: 
  Country: None (occurrence: None)
  Receive Date: 20100722
  Receipt Date: 20080605
  Transmission Date: 20110219
  Serious: No
  Sender: FDA-Public Use
  Company Number: US-PFIZER INC-2008047639

PATIENT
  Sex: Female
  Weight: 100 kg

DRUGS (8)
  1. CHANTIX [Suspect]
     Indication: SMOKING CESSATION THERAPY
     Dates: start: 20080501
  2. LEVOTHYROXINE SODIUM [Concomitant]
  3. YASMIN [Concomitant]
     Indication: ACNE
  4. METHOTREXATE [Concomitant]
  5. PREDNISONE [Concomitant]
  6. TOPAMAX [Concomitant]
  7. ZOLOFT [Concomitant]
  8. RITUXAN [Concomitant]

REACTIONS (2)
  - NAUSEA [None]
  - VOMITING [None]
